FAERS Safety Report 5573775-6 (Version None)
Quarter: 2007Q4

REPORT INFORMATION
  Report Type: 
  Country: None (occurrence: None)
  Receive Date: 20071226
  Receipt Date: 20071218
  Transmission Date: 20080405
  Serious: Yes (Other)
  Sender: FDA-Public Use
  Company Number: JP-ASTRAZENECA-2007AP08091

PATIENT
  Age: 10506 Day
  Sex: Female

DRUGS (7)
  1. OMEPRAZOLE [Suspect]
     Indication: REFLUX OESOPHAGITIS
     Route: 048
     Dates: start: 20071213, end: 20071214
  2. CLARITIN [Concomitant]
     Route: 048
     Dates: start: 20071214
  3. CELESTAMINE TAB [Concomitant]
     Route: 048
     Dates: start: 20071214
  4. POLARAMINE [Concomitant]
     Route: 030
     Dates: start: 20071214
  5. STRONGER NEO-MINOPHAGEN C [Concomitant]
     Route: 042
     Dates: start: 20071214
  6. PREDONINE [Concomitant]
     Route: 041
     Dates: start: 20071214
  7. ISOTONIC SODIUM CHLORIDE [Concomitant]
     Route: 042
     Dates: start: 20071214

REACTIONS (1)
  - DRUG ERUPTION [None]
